FAERS Safety Report 8759775 (Version 2)
Quarter: 2012Q4

REPORT INFORMATION
  Report Type: 
  Country: NZ (occurrence: NZ)
  Receive Date: 20120829
  Receipt Date: 20120920
  Transmission Date: 20130627
  Serious: Yes (Hospitalization)
  Sender: FDA-Public Use
  Company Number: NZ-ROCHE-1109900

PATIENT
  Age: 58 Year
  Sex: Female

DRUGS (2)
  1. HERCEPTIN [Suspect]
     Indication: BREAST CANCER
     Route: 042
     Dates: start: 20110712
  2. PACLITAXEL [Concomitant]
     Route: 065
     Dates: start: 20110712, end: 20120906

REACTIONS (1)
  - Cardiomyopathy [Recovering/Resolving]
